FAERS Safety Report 7502630-7 (Version None)
Quarter: 2011Q2

REPORT INFORMATION
  Report Type: 
  Country: None (occurrence: None)
  Receive Date: 20110525
  Receipt Date: 20110512
  Transmission Date: 20111010
  Serious: Yes (Other)
  Sender: FDA-Public Use
  Company Number: PHHY2011DE42236

PATIENT
  Sex: Female

DRUGS (5)
  1. AERIUS [Concomitant]
     Indication: RHINITIS ALLERGIC
     Dosage: UNK UKN, UNK
  2. MICTONORM [Concomitant]
     Indication: URINARY INCONTINENCE
     Dosage: UNK UKN, UNK
  3. GILENYA [Suspect]
     Indication: MULTIPLE SCLEROSIS
     Dosage: 0.5 MG, EVERY DAY
     Route: 048
     Dates: start: 20110423, end: 20110512
  4. EFFORTIL [Concomitant]
     Indication: HYPOTENSION
     Dosage: UNK UKN, UNK
  5. LAFAMME [Concomitant]
     Indication: HORMONE REPLACEMENT THERAPY
     Dosage: 2/2 MG UKN, UNK

REACTIONS (8)
  - ERYTHEMA OF EYELID [None]
  - EYELID OEDEMA [None]
  - WEIGHT INCREASED [None]
  - FLUID RETENTION [None]
  - EYELIDS PRURITUS [None]
  - GENERALISED OEDEMA [None]
  - DYSPNOEA [None]
  - HYPERSENSITIVITY [None]
